FAERS Safety Report 5134909-0 (Version None)
Quarter: 2006Q4

REPORT INFORMATION
  Report Type: 
  Country: None (occurrence: None)
  Receive Date: 20061019
  Receipt Date: 20061004
  Transmission Date: 20070319
  Serious: Yes (Other)
  Sender: FDA-Public Use
  Company Number: US200610000739

PATIENT
  Sex: Female

DRUGS (3)
  1. HUMULIN N [Suspect]
     Indication: DIABETES MELLITUS INSULIN-DEPENDENT
     Dates: start: 19480101
  2. HUMULIN R [Suspect]
     Indication: DIABETES MELLITUS INSULIN-DEPENDENT
     Dates: start: 19480101
  3. NEXIUM [Concomitant]

REACTIONS (10)
  - ARTERIAL DISORDER [None]
  - BLOOD GLUCOSE INCREASED [None]
  - CARDIAC DISORDER [None]
  - CAROTID ARTERY OCCLUSION [None]
  - COMA [None]
  - CORONARY ARTERY BYPASS [None]
  - DIABETES MELLITUS [None]
  - DIABETIC NEUROPATHY [None]
  - HEADACHE [None]
  - LIMB DISCOMFORT [None]
